FAERS Safety Report 4488048-2 (Version None)
Quarter: 2004Q4

REPORT INFORMATION
  Report Type: 
  Country: None (occurrence: None)
  Receive Date: 20041028
  Receipt Date: 20041021
  Transmission Date: 20050328
  Serious: Yes (Death)
  Sender: FDA-Public Use
  Company Number: US-GLAXOSMITHKLINE-A0531031A

PATIENT
  Age: 60 Year
  Sex: Male

DRUGS (2)
  1. PAXIL CR [Suspect]
     Indication: ANXIETY
     Dosage: 25MG PER DAY
     Route: 048
     Dates: start: 20040723, end: 20040723
  2. PAROXETINE HYDROCHLORIDE [Suspect]
     Indication: ANXIETY
     Dosage: 20MG PER DAY
     Route: 048
     Dates: start: 20040705, end: 20040722

REACTIONS (8)
  - ABNORMAL BEHAVIOUR [None]
  - ANXIETY [None]
  - COMPLETED SUICIDE [None]
  - CONFUSIONAL STATE [None]
  - HYPERHIDROSIS [None]
  - PALPITATIONS [None]
  - PARANOIA [None]
  - RESTLESSNESS [None]
